FAERS Safety Report 13742261 (Version 1)
Quarter: 2017Q3

REPORT INFORMATION
  Report Type: Spontaneous
  Country: FR (occurrence: FR)
  Receive Date: 20170711
  Receipt Date: 20170711
  Transmission Date: 20171127
  Serious: Yes (Other)
  Sender: FDA-Public Use
  Company Number: PHHY2011FR14794

PATIENT
  Age: 87 Year
  Sex: Male

DRUGS (4)
  1. PLAQUENIL [Concomitant]
     Active Substance: HYDROXYCHLOROQUINE SULFATE
     Indication: CUTANEOUS LUPUS ERYTHEMATOSUS
     Dosage: UNK UKN, UNK
     Dates: start: 200902
  2. DIAMOX SEQUELS [Concomitant]
     Active Substance: ACETAZOLAMIDE
     Indication: GLAUCOMA
     Dosage: UNK UKN, UNK
  3. FLUVASTATIN [Concomitant]
     Active Substance: FLUVASTATIN SODIUM
     Indication: HYPERCHOLESTEROLAEMIA
     Dosage: UNK UKN, UNK
  4. CARTEOLOL [Suspect]
     Active Substance: CARTEOLOL
     Indication: GLAUCOMA
     Dosage: UNK UKN, UNK
     Route: 047
     Dates: end: 2010

REACTIONS (6)
  - Pruritus [Unknown]
  - Cyanosis [Unknown]
  - Oral lichen planus [Unknown]
  - Cutaneous lupus erythematosus [Not Recovered/Not Resolved]
  - Vasculitis [Unknown]
  - Retinopathy [Unknown]

NARRATIVE: CASE EVENT DATE: 20090120
